FAERS Safety Report 4637152-4 (Version None)
Quarter: 2005Q2

REPORT INFORMATION
  Report Type: 
  Country: None (occurrence: None)
  Receive Date: 20050325
  Receipt Date: 20041124
  Transmission Date: 20051028
  Serious: No
  Sender: FDA-Public Use
  Company Number: USA040977694

PATIENT
  Age: 78 Year
  Sex: Female
  Weight: 55 kg

DRUGS (3)
  1. FORTEO [Suspect]
     Indication: OSTEOPOROSIS
     Dates: start: 20040701
  2. PREMARIN [Concomitant]
  3. VITAMIN E [Concomitant]

REACTIONS (9)
  - ABDOMINAL DISTENSION [None]
  - ALOPECIA [None]
  - ASTHENIA [None]
  - BREAST SWELLING [None]
  - BREAST TENDERNESS [None]
  - BURNING SENSATION [None]
  - CAUTERY TO NOSE [None]
  - PAIN IN EXTREMITY [None]
  - WHITE BLOOD CELL COUNT DECREASED [None]
